FAERS Safety Report 6317311-5 (Version None)
Quarter: 2009Q3

REPORT INFORMATION
  Report Type: 
  Country: None (occurrence: None)
  Receive Date: 20090821
  Receipt Date: 20090813
  Transmission Date: 20100115
  Serious: Yes (Hospitalization)
  Sender: FDA-Public Use
  Company Number: US-BIOGENIDEC-2009BI025697

PATIENT
  Sex: Female

DRUGS (1)
  1. TYSABRI [Suspect]
     Indication: MULTIPLE SCLEROSIS
     Route: 042
     Dates: start: 20071023

REACTIONS (7)
  - ASTHENIA [None]
  - CHRONIC RESPIRATORY FAILURE [None]
  - CONFUSIONAL STATE [None]
  - DYSPHAGIA [None]
  - HYPERTENSION [None]
  - HYPOTHERMIA [None]
  - MULTIPLE SCLEROSIS [None]
